FAERS Safety Report 9508399 (Version 1)
Quarter: 2013Q1

REPORT INFORMATION
  Report Type: Spontaneous
  Country: US (occurrence: None)
  Receive Date: 20130305
  Receipt Date: 20130305
  Transmission Date: 20140127
  Serious: Yes (Hospitalization)
  Sender: FDA-Public Use
  Company Number: 163-21880-12111830

PATIENT
  Age: 70 Year
  Sex: Male
  Weight: 86.18 kg

DRUGS (10)
  1. REVLIMID (LENALIDOMIDE) [Suspect]
     Indication: PLASMA CELL MYELOMA
     Dosage: 1 IN 1 D
     Route: 048
     Dates: start: 20110808
  2. ACICLOVIR [Concomitant]
  3. ASA (ACETYLSALICYLIC ACID) [Concomitant]
  4. ALLOPURINOL [Concomitant]
  5. BENICAR (OLMESARTAN MEDOXOMIL) [Concomitant]
  6. COUMADIN (WARFARIN SODIUM) [Concomitant]
  7. FINASTERIDE (FINASTERIDE) [Concomitant]
  8. TAMSULOSIN HCL (TAMSULOSIN HYDROCHLORIDE) [Concomitant]
  9. VELCADE (BORTEZOMIB) [Concomitant]
  10. VENLAFAXINE HCL (VENLAFAXINE HYDROCHLORIDE) [Concomitant]

REACTIONS (2)
  - Pyrexia [None]
  - Bone pain [None]
